FAERS Safety Report 4327919-4 (Version None)
Quarter: 2004Q1

REPORT INFORMATION
  Report Type: 
  Country: None (occurrence: None)
  Receive Date: 20040325
  Receipt Date: 20040115
  Transmission Date: 20041129
  Serious: Yes (Death, Life-Threatening, Hospitalization, Disabling, Other)
  Sender: FDA-Public Use
  Company Number: EM2004-0121

PATIENT
  Age: 61 Year
  Sex: Female

DRUGS (10)
  1. ALDESLEUKIN; CHIRON (ALDESLEUKIN) INJECTION [Suspect]
     Indication: HIV INFECTION
     Dosage: 4.5  MIU, BID X 5 DAYS, SUBCUTAN.
     Route: 058
     Dates: start: 20001023, end: 20001027
  2. LEVOTHYROXINE SODIUM [Concomitant]
  3. BACTRIM [Concomitant]
  4. AMITRIPTYLINE HCL [Concomitant]
  5. ATENOLOL [Concomitant]
  6. ASPIRIN [Concomitant]
  7. ABACAVIR (ABACAVIR) [Concomitant]
  8. 3TC (LAMIVUDINE) [Concomitant]
  9. KALETRA [Concomitant]
  10. LOSACAR [Concomitant]

REACTIONS (5)
  - CEREBRAL INFARCTION [None]
  - COMA [None]
  - MENINGIOMA [None]
  - POST PROCEDURAL COMPLICATION [None]
  - PYREXIA [None]
